FAERS Safety Report 20541275 (Version 1)
Quarter: 2022Q1

REPORT INFORMATION
  Report Type: Spontaneous
  Country: US (occurrence: None)
  Receive Date: 20220302
  Receipt Date: 20220302
  Transmission Date: 20220423
  Serious: Yes (Hospitalization)
  Sender: FDA-Public Use
  Company Number: None

PATIENT
  Age: 5 Year
  Sex: Male

DRUGS (1)
  1. BENEFIX [Suspect]
     Active Substance: COAGULATION FACTOR IX RECOMBINANT HUMAN\ISOPROPYL ALCOHOL
     Indication: Factor IX deficiency
     Dosage: 1500U TWICE A WEEK INTRAVENOUS?
     Route: 042
     Dates: start: 20210222

REACTIONS (4)
  - Bacterial infection [None]
  - Haemorrhage [None]
  - Illness [None]
  - Pyrexia [None]

NARRATIVE: CASE EVENT DATE: 20220225
